FAERS Safety Report 19007015 (Version 1)
Quarter: 2021Q1

REPORT INFORMATION
  Report Type: Spontaneous
  Country: IT (occurrence: IT)
  Receive Date: 20210315
  Receipt Date: 20210315
  Transmission Date: 20210420
  Serious: Yes (Death, Other)
  Sender: FDA-Public Use
  Company Number: IT-CELLTRION INC.-2021IT003177

PATIENT

DRUGS (3)
  1. TRASTUZUMAB (UNKNOWN) [Suspect]
     Active Substance: TRASTUZUMAB
     Dosage: DOSE: 3; UNK, 3 TIMES/WK
     Route: 065
     Dates: start: 201811
  2. PACLITAXEL. [Concomitant]
     Active Substance: PACLITAXEL
     Indication: PAGET^S DISEASE OF THE VULVA
     Dosage: UNK
     Dates: start: 201806
  3. TRASTUZUMAB (UNKNOWN) [Suspect]
     Active Substance: TRASTUZUMAB
     Indication: PAGET^S DISEASE OF THE VULVA
     Dosage: UNK, QWK
     Route: 065
     Dates: start: 201806, end: 2018

REACTIONS (11)
  - Performance status decreased [Fatal]
  - Osteitis deformans [Fatal]
  - Fatigue [Fatal]
  - Death [Fatal]
  - Off label use [Fatal]
  - Constipation [Fatal]
  - Disease progression [Fatal]
  - Neurotoxicity [Fatal]
  - Anaemia [Fatal]
  - Alopecia [Fatal]
  - Nausea [Fatal]

NARRATIVE: CASE EVENT DATE: 201806
